FAERS Safety Report 6159598-8 (Version None)
Quarter: 2009Q2

REPORT INFORMATION
  Report Type: 
  Country: None (occurrence: None)
  Receive Date: 20090420
  Receipt Date: 20090413
  Transmission Date: 20091009
  Serious: Yes (Hospitalization)
  Sender: FDA-Public Use
  Company Number: US-JNJFOC-20090403129

PATIENT
  Age: 39 Year
  Sex: Female

DRUGS (4)
  1. TRAMADOL HYDROCHLORIDE AND ACETAMINOPHEN [Suspect]
     Indication: MULTIPLE DRUG OVERDOSE
     Route: 048
  2. ULTRAM [Suspect]
     Indication: MULTIPLE DRUG OVERDOSE
     Route: 048
  3. CYCLOBENZAPRINE [Suspect]
     Indication: MULTIPLE DRUG OVERDOSE
     Route: 048
  4. BENZODIAZEPINE [Suspect]
     Indication: MULTIPLE DRUG OVERDOSE
     Route: 048

REACTIONS (3)
  - MULTIPLE DRUG OVERDOSE [None]
  - PNEUMONIA ASPIRATION [None]
  - UNRESPONSIVE TO STIMULI [None]
